FAERS Safety Report 9444830 (Version 2)
Quarter: 2013Q3

REPORT INFORMATION
  Report Type: Spontaneous
  Country: US (occurrence: None)
  Receive Date: 20130802
  Receipt Date: 20130802
  Transmission Date: 20140515
  Serious: Yes (Hospitalization)
  Sender: FDA-Public Use
  Company Number: 2013-1255

PATIENT
  Age: 64 Year
  Sex: Male

DRUGS (8)
  1. KYPROLIS [Suspect]
     Indication: PLASMA CELL MYELOMA
     Route: 042
     Dates: start: 20130709
  2. PRILOSEC [Concomitant]
  3. ACYCLOVIR (ACICLOVIR) [Concomitant]
  4. ALIGN (BIFIDOBACTERIUM INFANTIS) [Concomitant]
  5. ALLOPURINOL [Concomitant]
  6. LYRICA (PREGABALIN) [Concomitant]
  7. ATIVAN (LORAZEPAM) [Concomitant]
  8. UNSPECIFIED INGREDIENT [Concomitant]

REACTIONS (9)
  - Chills [None]
  - Pyrexia [None]
  - Platelet count decreased [None]
  - Heart rate decreased [None]
  - Kidney infection [None]
  - Hiccups [None]
  - Fatigue [None]
  - Neck pain [None]
  - Dehydration [None]
